FAERS Safety Report 4648751-8 (Version None)
Quarter: 2005Q2

REPORT INFORMATION
  Report Type: 
  Country: None (occurrence: None)
  Receive Date: 20050427
  Receipt Date: 20050414
  Transmission Date: 20051028
  Serious: Yes (Hospitalization)
  Sender: FDA-Public Use
  Company Number: 2005060281

PATIENT
  Age: 61 Year
  Sex: Male

DRUGS (15)
  1. DOXORUBICIN HCL [Suspect]
     Indication: CHEMOTHERAPY
     Dosage: INTRAVENOUS
     Route: 042
     Dates: start: 20041123, end: 20041203
  2. CYTARABINE [Suspect]
     Indication: CHEMOTHERAPY
     Dosage: INTRAVENOUS
     Route: 042
     Dates: start: 20041123, end: 20041203
  3. CYCLOPHOSPHAMIDE [Suspect]
     Indication: CHEMOTHERAPY
     Dosage: INTRAVENOUS
     Route: 042
     Dates: start: 20041123, end: 20041203
  4. ETOPOSIDE [Suspect]
     Indication: CHEMOTHERAPY
     Dosage: INTRAVENOUS
     Route: 042
     Dates: start: 20041123, end: 20041203
  5. VIRGINIAMYCIN (VIRGINIAMYCIN) [Suspect]
     Indication: SKIN INFECTION
     Dosage: ORAL
     Route: 048
     Dates: start: 20041123
  6. ALLOPURINOL [Suspect]
     Indication: PROPHYLAXIS
     Dosage: ORAL
     Route: 048
     Dates: start: 20041119
  7. PIP/TAZO (PIPERACILLIN SODIUM, TAZOBACTAM SODIUM) [Suspect]
     Indication: ILL-DEFINED DISORDER
  8. ATENOLOL [Suspect]
     Indication: ILL-DEFINED DISORDER
  9. AMIODARONE HCL [Suspect]
     Indication: ILL-DEFINED DISORDER
  10. PIPERACILLIN/TAZOBACTAM [Concomitant]
  11. ATENOLOL [Concomitant]
  12. AMIODARONE HCL [Concomitant]
  13. LOSARTAN POTASSIUM [Concomitant]
  14. HYDROCHLOROTHIAZIDE [Concomitant]
  15. ENALAPRIL MALEATE [Concomitant]

REACTIONS (4)
  - CARDIAC FAILURE [None]
  - DERMATITIS EXFOLIATIVE [None]
  - FEBRILE BONE MARROW APLASIA [None]
  - RASH ERYTHEMATOUS [None]
